FAERS Safety Report 10012746 (Version 2)
Quarter: 2014Q2

REPORT INFORMATION
  Report Type: Report from Study
  Country: FR (occurrence: FR)
  Receive Date: 20140314
  Receipt Date: 20140421
  Transmission Date: 20141212
  Serious: Yes (Hospitalization)
  Sender: FDA-Public Use
  Company Number: FR-US-EMD SERONO, INC.-7274711

PATIENT
  Age: 22 Year
  Sex: Female

DRUGS (21)
  1. REBIF [Suspect]
     Indication: MULTIPLE SCLEROSIS
     Route: 058
     Dates: start: 20121205
  2. PLACEBO [Suspect]
     Indication: MULTIPLE SCLEROSIS
     Dates: start: 20121205
  3. ATARAX                             /00058401/ [Concomitant]
     Indication: INSOMNIA
     Dates: start: 20121205, end: 20121205
  4. ATARAX                             /00058401/ [Concomitant]
     Dates: start: 20121219, end: 20121219
  5. ATARAX                             /00058401/ [Concomitant]
     Route: 048
     Dates: start: 20121212, end: 20130106
  6. ATARAX                             /00058401/ [Concomitant]
     Route: 048
     Dates: start: 20130107
  7. PARACETAMOL [Concomitant]
     Indication: PRODUCT USED FOR UNKNOWN INDICATION
     Dates: start: 20121205
  8. PARACETAMOL [Concomitant]
     Dates: start: 20121219
  9. METHYLPREDNISOLONE [Concomitant]
     Indication: PRODUCT USED FOR UNKNOWN INDICATION
     Dates: start: 20121205, end: 20121205
  10. METHYLPREDNISOLONE [Concomitant]
     Dates: start: 20121219, end: 20121219
  11. LEVOCARNIL [Concomitant]
     Indication: FATIGUE
     Dates: start: 20120903
  12. IMOVANE [Concomitant]
     Indication: INSOMNIA
     Route: 048
     Dates: start: 20121206, end: 20130106
  13. IMOVANE [Concomitant]
     Route: 048
     Dates: start: 20130107, end: 20130131
  14. RIVOTRIL [Concomitant]
     Indication: INSOMNIA
     Route: 048
     Dates: start: 20120903, end: 20121204
  15. RIVOTRIL [Concomitant]
     Route: 048
     Dates: start: 20121205, end: 20121219
  16. RIVOTRIL [Concomitant]
     Route: 048
     Dates: start: 20121220, end: 20130103
  17. RIVOTRIL [Concomitant]
     Route: 048
     Dates: start: 20130104, end: 20130118
  18. XYZALL                             /01530201/ [Concomitant]
     Indication: HYPERSENSITIVITY
     Route: 048
     Dates: start: 20121219, end: 20121231
  19. LYRICA [Concomitant]
     Indication: PAIN
     Route: 048
     Dates: start: 20121219
  20. DOLIPRANE [Concomitant]
     Indication: HEADACHE
     Route: 048
     Dates: start: 20121206, end: 201301
  21. DOLIPRANE [Concomitant]
     Indication: PYREXIA

REACTIONS (1)
  - Viral infection [Recovered/Resolved]
